FAERS Safety Report 10908519 (Version 8)
Quarter: 2015Q2

REPORT INFORMATION
  Report Type: Spontaneous
  Country: GB (occurrence: GB)
  Receive Date: 20150312
  Receipt Date: 20150520
  Transmission Date: 20150821
  Serious: Yes (Death, Other)
  Sender: FDA-Public Use
  Company Number: GB-WATSON-2015-04635

PATIENT
  Age: 39 Year
  Sex: Female

DRUGS (8)
  1. LAMOTRIGINE (UNKNOWN) [Suspect]
     Active Substance: LAMOTRIGINE
     Dosage: 50 MG, DAILY; TO COMMENCE FOLLOWING COMPLETION OF 25 MG LAMOTRIGINE DAILY
     Route: 048
     Dates: start: 201501
  2. QUETIAPINE (UNKNOWN) [Suspect]
     Active Substance: QUETIAPINE
     Dosage: 500 MG, QPM; 500 MG ONCE AT NIGHT PLUS 25-50 MG THREE TIMES DAILY/ AS NECESSARY
     Route: 065
     Dates: start: 201502
  3. MIRTAZAPINE (UNKNOWN) [Suspect]
     Active Substance: MIRTAZAPINE
     Indication: PRODUCT USED FOR UNKNOWN INDICATION
     Dosage: UNK
     Route: 065
  4. LORAZEPAM. [Concomitant]
     Active Substance: LORAZEPAM
     Indication: ANXIETY
     Dosage: UNK, PRN; 0.5-1MG TWICE DAILY / AS NECESSARY FOR 3 DAYS FOR SEVERE ANXIETY
     Route: 065
     Dates: start: 20150204
  5. LAMOTRIGINE (UNKNOWN) [Suspect]
     Active Substance: LAMOTRIGINE
     Indication: BIPOLAR I DISORDER
     Dosage: 100 MG, DAILY; 25MG OD FOR 2 WEEKS THEN 50MG OD FOR 2 WEEKS, THEN 100MG ONCE DAILY FROM 05 02 15
     Route: 048
     Dates: start: 20150207, end: 20150209
  6. QUETIAPINE (UNKNOWN) [Suspect]
     Active Substance: QUETIAPINE
     Indication: BIPOLAR I DISORDER
     Dosage: 400 MG, QPM; 400MG ONCE AT NIGHT PLUS 25-50MG THREE TIMES DAILY / AS NECESSARY
     Route: 065
     Dates: start: 20150204, end: 201502
  7. QUETIAPINE (UNKNOWN) [Suspect]
     Active Substance: QUETIAPINE
     Dosage: UNK, PRN (25-50 MG TID / PRN)
     Route: 065
     Dates: start: 20150204
  8. LAMOTRIGINE (UNKNOWN) [Suspect]
     Active Substance: LAMOTRIGINE
     Dosage: 25 MG, DAILY
     Route: 048
     Dates: start: 20150106

REACTIONS (6)
  - Seizure [Not Recovered/Not Resolved]
  - Cardiac arrest [Not Recovered/Not Resolved]
  - Overdose [Fatal]
  - Persecutory delusion [Not Recovered/Not Resolved]
  - Depression [Not Recovered/Not Resolved]
  - Paranoia [Not Recovered/Not Resolved]

NARRATIVE: CASE EVENT DATE: 20150204
